FAERS Safety Report 9778039 (Version 2)
Quarter: 2016Q3

REPORT INFORMATION
  Report Type: Report from Study
  Country: US (occurrence: US)
  Receive Date: 20131223
  Receipt Date: 20160929
  Transmission Date: 20161109
  Serious: Yes (Hospitalization, Other)
  Sender: FDA-Public Use
  Company Number: US-ROCHE-1320937

PATIENT
  Age: 62 Year
  Sex: Female
  Weight: 65.4 kg

DRUGS (18)
  1. BEVACIZUMAB [Suspect]
     Active Substance: BEVACIZUMAB
     Dosage: COURSE 3
     Route: 042
     Dates: start: 20110119
  2. IXABEPILONE [Suspect]
     Active Substance: IXABEPILONE
     Indication: ENDOMETRIAL ADENOCARCINOMA
     Dosage: COURSE 1
     Route: 042
     Dates: start: 20101207
  3. BEVACIZUMAB [Suspect]
     Active Substance: BEVACIZUMAB
     Dosage: COURSE 5
     Route: 042
     Dates: start: 20110330
  4. BEVACIZUMAB [Suspect]
     Active Substance: BEVACIZUMAB
     Dosage: COURSE 7
     Route: 042
     Dates: start: 20110526
  5. BEVACIZUMAB [Suspect]
     Active Substance: BEVACIZUMAB
     Dosage: COURSE 9
     Route: 042
     Dates: start: 20110707
  6. IXABEPILONE [Suspect]
     Active Substance: IXABEPILONE
     Dosage: COURSE 6
     Route: 042
     Dates: start: 20110427
  7. CARBOPLATIN. [Suspect]
     Active Substance: CARBOPLATIN
     Indication: ENDOMETRIAL ADENOCARCINOMA
     Dosage: AUC = 6 OVER 30 MINUTES ON DAY 1 X 6 CYCLES (CYCLE = 21 DAYS)?TOTAL DOSE ADMINISTERED - 530 MG ?LAST
     Route: 042
  8. IXABEPILONE [Suspect]
     Active Substance: IXABEPILONE
     Dosage: COURSE 3
     Route: 042
     Dates: start: 20110119
  9. IXABEPILONE [Suspect]
     Active Substance: IXABEPILONE
     Dosage: COURSE 5
     Route: 042
     Dates: start: 20110330
  10. CARBOPLATIN. [Suspect]
     Active Substance: CARBOPLATIN
     Dosage: AUC = 5 OVER 30 MINUTES ON DAY 1 X 6 CYCLES?TOTAL DOSE ADMINISTERED - 530 MG ?LAST ADMINISTERED DATE
     Route: 042
  11. IXABEPILONE [Suspect]
     Active Substance: IXABEPILONE
     Dosage: COURSE 2
     Route: 042
     Dates: start: 20101229
  12. BEVACIZUMAB [Suspect]
     Active Substance: BEVACIZUMAB
     Indication: ENDOMETRIAL ADENOCARCINOMA
     Dosage: COURSE 1
     Route: 042
     Dates: start: 20101207
  13. BEVACIZUMAB [Suspect]
     Active Substance: BEVACIZUMAB
     Dosage: COURSE 4
     Route: 042
     Dates: start: 20110302
  14. BEVACIZUMAB [Suspect]
     Active Substance: BEVACIZUMAB
     Dosage: COURSE 8
     Route: 042
     Dates: start: 20110616
  15. BACTRIM [Concomitant]
     Active Substance: SULFAMETHOXAZOLE\TRIMETHOPRIM
     Indication: URINARY TRACT INFECTION
     Route: 065
  16. BEVACIZUMAB [Suspect]
     Active Substance: BEVACIZUMAB
     Dosage: COURSE 2
     Route: 042
     Dates: start: 20101229
  17. IXABEPILONE [Suspect]
     Active Substance: IXABEPILONE
     Dosage: COURSE 4
     Route: 042
     Dates: start: 20110302
  18. BEVACIZUMAB [Suspect]
     Active Substance: BEVACIZUMAB
     Dosage: COURSE 6
     Route: 042
     Dates: start: 20110427

REACTIONS (18)
  - Hypokalaemia [Unknown]
  - Presyncope [Unknown]
  - Hyponatraemia [Unknown]
  - Nausea [Unknown]
  - Fatigue [Unknown]
  - Rash maculo-papular [Recovered/Resolved]
  - Platelet count decreased [Unknown]
  - Neutrophil count decreased [Unknown]
  - Dehydration [Recovered/Resolved]
  - Anaemia [Unknown]
  - Peripheral sensory neuropathy [Unknown]
  - Blood creatinine increased [Recovered/Resolved]
  - Dyspnoea [Unknown]
  - Hyponatraemia [Recovered/Resolved]
  - Rash maculo-papular [Unknown]
  - Vomiting [Recovered/Resolved]
  - Constipation [Unknown]
  - White blood cell count decreased [Unknown]

NARRATIVE: CASE EVENT DATE: 20110205
